FAERS Safety Report 8544429-9 (Version None)
Quarter: 2012Q3

REPORT INFORMATION
  Report Type: 
  Country: None (occurrence: None)
  Receive Date: 20120727
  Receipt Date: 20120724
  Transmission Date: 20120928
  Serious: Yes (Other)
  Sender: FDA-Public Use
  Company Number: GR-AMGEN-GRCSP2012046276

PATIENT
  Age: 71 Year
  Sex: Male

DRUGS (4)
  1. VIBRAMYCIN                         /00055702/ [Concomitant]
     Indication: PROPHYLAXIS
     Dosage: UNK
     Dates: start: 20120101
  2. VECTIBIX [Suspect]
     Indication: PRODUCT USED FOR UNKNOWN INDICATION
     Dosage: UNK
     Dates: start: 20120401
  3. FOLFIRI [Concomitant]
     Indication: METASTASES TO LUNG
  4. FOLFIRI [Concomitant]
     Indication: METASTASES TO LIVER
     Dosage: UNK
     Dates: start: 20120401

REACTIONS (2)
  - DERMATITIS [None]
  - KERATITIS [None]
